FAERS Safety Report 7398772-X (Version None)
Quarter: 2011Q2

REPORT INFORMATION
  Report Type: 
  Country: None (occurrence: None)
  Receive Date: 20110401
  Receipt Date: 20110401
  Transmission Date: 20111010
  Serious: Yes (Other)
  Sender: FDA-Public Use
  Company Number: None

PATIENT
  Sex: Female
  Weight: 49.3 kg

DRUGS (4)
  1. TAXANE [Concomitant]
  2. DEXAMETHASONE [Concomitant]
  3. SUNITINIB [Suspect]
     Indication: NEOPLASM MALIGNANT
     Dosage: 37.5 MG OF STUDY DRUG QD ORAL
     Route: 048
     Dates: start: 20110325
  4. COMPAZINE [Concomitant]

REACTIONS (1)
  - NEUTROPENIA [None]
